FAERS Safety Report 8305553-9 (Version None)
Quarter: 2012Q2

REPORT INFORMATION
  Report Type: 
  Country: None (occurrence: None)
  Receive Date: 20120423
  Receipt Date: 20120411
  Transmission Date: 20120825
  Serious: Yes (Congenital Anomaly, Other)
  Sender: FDA-Public Use
  Company Number: ES-MERCK-1204ESP00023B1

PATIENT
  Age: 1 Day
  Sex: Male

DRUGS (4)
  1. PROSCAR [Suspect]
     Route: 064
     Dates: start: 20100101, end: 20120101
  2. PROSCAR [Suspect]
     Route: 064
     Dates: start: 20090101, end: 20091201
  3. PROSCAR [Suspect]
     Indication: ALOPECIA
     Route: 064
     Dates: start: 20060101, end: 20090101
  4. MINOXIDIL [Concomitant]
     Indication: ALOPECIA
     Route: 064

REACTIONS (2)
  - FOETAL EXPOSURE DURING PREGNANCY [None]
  - HYPOSPADIAS [None]
